FAERS Safety Report 11769877 (Version 1)
Quarter: 2015Q4

REPORT INFORMATION
  Report Type: Spontaneous
  Country: US (occurrence: US)
  Receive Date: 20151123
  Receipt Date: 20151123
  Transmission Date: 20160304
  Serious: Yes (Life-Threatening, Hospitalization)
  Sender: FDA-Public Use
  Company Number: US-ABBVIE-15P-163-1504451-00

PATIENT
  Age: 59 Year
  Sex: Male
  Weight: 97 kg

DRUGS (10)
  1. PRILOSEC [Concomitant]
     Active Substance: OMEPRAZOLE MAGNESIUM
     Indication: PRODUCT USED FOR UNKNOWN INDICATION
     Dosage: DELAYED RELEASE CAPSULE, TAKE 1 CAPSULE 30 MIN BEFORE BREAKFAST (90 CAPSULES 3)
     Route: 048
     Dates: start: 20150310
  2. ECOTRIN [Concomitant]
     Active Substance: ASPIRIN
     Indication: PRODUCT USED FOR UNKNOWN INDICATION
     Dosage: DELAYED-RELEASE TABLETS
     Route: 048
     Dates: start: 20120814
  3. DIOVAN [Concomitant]
     Active Substance: VALSARTAN
     Indication: HYPERTENSION
     Dosage: CAP, EXT RELEASE PELLETS 24 HOUR
     Route: 048
     Dates: start: 20120814
  4. XANAX [Concomitant]
     Active Substance: ALPRAZOLAM
     Indication: PRODUCT USED FOR UNKNOWN INDICATION
     Route: 048
     Dates: start: 20120814
  5. DIOVAN [Concomitant]
     Active Substance: VALSARTAN
     Indication: PRODUCT USED FOR UNKNOWN INDICATION
     Route: 048
     Dates: start: 20120814
  6. DILAUDID [Concomitant]
     Active Substance: HYDROMORPHONE HYDROCHLORIDE
     Indication: PRODUCT USED FOR UNKNOWN INDICATION
     Route: 048
  7. VIEKIRA PAK [Suspect]
     Active Substance: DASABUVIR\OMBITASVIR\PARITAPREVIR\RITONAVIR
     Indication: HEPATITIS C
     Dosage: 12.5-75-50MG/250 COMBO PACK AS DIRECTED DAILY
     Route: 048
     Dates: start: 20150827, end: 20150828
  8. NORVASC [Concomitant]
     Active Substance: AMLODIPINE BESYLATE
     Indication: PRODUCT USED FOR UNKNOWN INDICATION
     Route: 048
     Dates: start: 20120814
  9. HUMULIN NOS [Concomitant]
     Active Substance: INSULIN HUMAN
     Indication: PRODUCT USED FOR UNKNOWN INDICATION
     Dosage: 100 UNIT/ML (70-30) INJECTION PEN (20-40U IN AM, 60U BEFORE DINNER)
     Dates: start: 20120424
  10. IMURAN [Concomitant]
     Active Substance: AZATHIOPRINE
     Indication: PRODUCT USED FOR UNKNOWN INDICATION
     Dosage: (180 TABLET 4)
     Route: 048
     Dates: start: 20150310

REACTIONS (15)
  - Presyncope [Unknown]
  - Blood potassium increased [Unknown]
  - Vomiting [Unknown]
  - Atrioventricular block [Unknown]
  - Dizziness [Recovering/Resolving]
  - Blood pressure increased [Unknown]
  - Dyspnoea [Recovering/Resolving]
  - Dizziness [Unknown]
  - Heart rate increased [Unknown]
  - Nausea [Not Recovered/Not Resolved]
  - Blood creatinine increased [Unknown]
  - Hyperhidrosis [Unknown]
  - Muscle spasms [Recovering/Resolving]
  - Bradycardia [Unknown]
  - Malaise [Unknown]

NARRATIVE: CASE EVENT DATE: 20150829
